FAERS Safety Report 4996040-4 (Version None)
Quarter: 2006Q2

REPORT INFORMATION
  Report Type: 
  Country: None (occurrence: None)
  Receive Date: 20060508
  Receipt Date: 20060407
  Transmission Date: 20061013
  Serious: Yes (Hospitalization, Other)
  Sender: FDA-Public Use
  Company Number: US-MERCK-0604USA01903

PATIENT
  Age: 68 Year
  Sex: Male

DRUGS (1)
  1. VIOXX [Suspect]
     Indication: JOINT STIFFNESS
     Route: 048
     Dates: end: 20040414

REACTIONS (7)
  - ANGINA UNSTABLE [None]
  - CEREBROVASCULAR ACCIDENT [None]
  - CORONARY ARTERY DISEASE [None]
  - CORONARY ARTERY STENOSIS [None]
  - ELECTROCARDIOGRAM ST-T CHANGE [None]
  - MYOCARDIAL INFARCTION [None]
  - VENTRICULAR EXTRASYSTOLES [None]
